FAERS Safety Report 7809111-1 (Version None)
Quarter: 2011Q4

REPORT INFORMATION
  Report Type: 
  Country: None (occurrence: None)
  Receive Date: 20111012
  Receipt Date: 20110927
  Transmission Date: 20120403
  Serious: Yes (Other)
  Sender: FDA-Public Use
  Company Number: US-ROCHE-1002250

PATIENT
  Sex: Female

DRUGS (4)
  1. CYCLOPHOSPHAMIDE [Concomitant]
  2. PREDNISONE [Concomitant]
  3. RITUXAN [Suspect]
     Indication: PRODUCT USED FOR UNKNOWN INDICATION
  4. VINCRISTINE [Concomitant]

REACTIONS (1)
  - DISEASE PROGRESSION [None]
